FAERS Safety Report 6861343-5 (Version None)
Quarter: 2010Q3

REPORT INFORMATION
  Report Type: 
  Country: None (occurrence: None)
  Receive Date: 20100720
  Receipt Date: 20100709
  Transmission Date: 20110219
  Serious: Yes (Death, Hospitalization, Other)
  Sender: FDA-Public Use
  Company Number: HQWYE949823FEB06

PATIENT
  Sex: Female

DRUGS (5)
  1. PREMPRO [Suspect]
  2. PREMARIN [Suspect]
  3. FEMHRT [Suspect]
  4. PROVERA [Suspect]
  5. ESTRACE [Suspect]

REACTIONS (1)
  - BREAST CANCER METASTATIC [None]
